FAERS Safety Report 16251539 (Version 1)
Quarter: 2019Q2

REPORT INFORMATION
  Report Type: Spontaneous
  Country: JP (occurrence: JP)
  Receive Date: 20190429
  Receipt Date: 20190429
  Transmission Date: 20190711
  Serious: Yes (Hospitalization)
  Sender: FDA-Public Use
  Company Number: JP-PFIZER INC-2019174358

PATIENT
  Age: 57 Year
  Sex: Female
  Weight: 74 kg

DRUGS (17)
  1. DEXART [Concomitant]
     Active Substance: DEXAMETHASONE SODIUM PHOSPHATE
     Dosage: UNK
     Dates: start: 20190201, end: 20190201
  2. DECADRON [Concomitant]
     Active Substance: DEXAMETHASONE
     Dosage: UNK
     Dates: start: 20190111, end: 20190114
  3. DECADRON [Concomitant]
     Active Substance: DEXAMETHASONE
     Dosage: UNK
     Dates: start: 20190201, end: 20190204
  4. DEXART [Concomitant]
     Active Substance: DEXAMETHASONE SODIUM PHOSPHATE
     Dosage: UNK
     Dates: start: 20190111, end: 20190111
  5. G LASTA [Concomitant]
     Active Substance: PEGFILGRASTIM
     Dosage: UNK
     Dates: start: 20190223, end: 20190223
  6. DOCETAXEL HOSPIRA [Suspect]
     Active Substance: DOCETAXEL
     Indication: BREAST CANCER FEMALE
     Dosage: 125 MG, CYCLIC
     Route: 041
     Dates: start: 20190111, end: 20190315
  7. GRANISETRON [Concomitant]
     Active Substance: GRANISETRON
     Dosage: UNK
     Dates: start: 20190222, end: 20190222
  8. DEXART [Concomitant]
     Active Substance: DEXAMETHASONE SODIUM PHOSPHATE
     Dosage: UNK
     Dates: start: 20190222, end: 20190222
  9. DEXART [Concomitant]
     Active Substance: DEXAMETHASONE SODIUM PHOSPHATE
     Dosage: UNK
     Dates: start: 20190315, end: 20190315
  10. DECADRON [Concomitant]
     Active Substance: DEXAMETHASONE
     Dosage: UNK
     Dates: start: 20190222, end: 20190225
  11. G LASTA [Concomitant]
     Active Substance: PEGFILGRASTIM
     Dosage: UNK
     Dates: start: 20190202, end: 20190202
  12. G LASTA [Concomitant]
     Active Substance: PEGFILGRASTIM
     Dosage: UNK
     Dates: start: 20190316, end: 20190316
  13. GRANISETRON [Concomitant]
     Active Substance: GRANISETRON
     Dosage: UNK
     Dates: start: 20190111, end: 20190111
  14. DECADRON [Concomitant]
     Active Substance: DEXAMETHASONE
     Dosage: UNK
     Dates: start: 20190314, end: 20190317
  15. GRANISETRON [Concomitant]
     Active Substance: GRANISETRON
     Dosage: UNK
     Dates: start: 20190201, end: 20190201
  16. ENDOXAN [CYCLOPHOSPHAMIDE] [Suspect]
     Active Substance: CYCLOPHOSPHAMIDE
     Indication: BREAST CANCER FEMALE
     Dosage: 997 MG, CYCLIC
     Route: 041
     Dates: start: 20190111, end: 20190315
  17. GRANISETRON [Concomitant]
     Active Substance: GRANISETRON
     Dosage: UNK
     Dates: start: 20190315, end: 20190315

REACTIONS (2)
  - Lung disorder [Recovering/Resolving]
  - Drug eruption [Recovered/Resolved]

NARRATIVE: CASE EVENT DATE: 20190212
